FAERS Safety Report 13719268 (Version 1)
Quarter: 2017Q3

REPORT INFORMATION
  Report Type: Spontaneous
  Country: CN (occurrence: CN)
  Receive Date: 20170705
  Receipt Date: 20170705
  Transmission Date: 20171127
  Serious: Yes (Other)
  Sender: FDA-Public Use
  Company Number: CN-GILEAD-2017-0281507

PATIENT
  Age: 62 Year
  Sex: Female

DRUGS (1)
  1. ADEFOVIR DIPIVOXIL. [Suspect]
     Active Substance: ADEFOVIR DIPIVOXIL
     Indication: HEPATITIS B
     Dosage: 10 MG, QD
     Route: 065

REACTIONS (16)
  - Muscle spasms [Unknown]
  - Ligament sprain [Unknown]
  - Limb deformity [Unknown]
  - Osteoporosis [Unknown]
  - Bone scan abnormal [Unknown]
  - Osteomalacia [Unknown]
  - Hypophosphataemia [Unknown]
  - Joint swelling [Unknown]
  - Muscle contracture [Unknown]
  - Arthralgia [Unknown]
  - Osteoarthritis [Unknown]
  - Fanconi syndrome acquired [Unknown]
  - Pain in extremity [Unknown]
  - Hypokinesia [Unknown]
  - Condition aggravated [Unknown]
  - Femoral neck fracture [Unknown]
